FAERS Safety Report 5626452-7 (Version None)
Quarter: 2008Q1

REPORT INFORMATION
  Report Type: 
  Country: None (occurrence: None)
  Receive Date: 20080214
  Receipt Date: 20071018
  Transmission Date: 20080703
  Serious: Yes (Other)
  Sender: FDA-Public Use
  Company Number: US-JNJFOC-20080201609

PATIENT
  Sex: Male

DRUGS (4)
  1. IMODIUM [Suspect]
     Route: 048
  2. IMODIUM [Suspect]
     Indication: DIARRHOEA
     Dosage: 2 MG FOUR TIMES A DAY AS NECESSARY
     Route: 048
  3. LISTERINE AGENT COOL BLUE GLACIER MINT [Suspect]
     Indication: DRUG USE FOR UNKNOWN INDICATION
     Route: 048
  4. PHENERGAN HCL [Suspect]
     Indication: NAUSEA
     Dosage: 12.5 - 25 MG FOUR TIMES A DAY AS NECESSARY
     Route: 048

REACTIONS (5)
  - BLINDNESS TRANSIENT [None]
  - GASTRITIS [None]
  - GASTRODUODENITIS [None]
  - VIRAL INFECTION [None]
  - WEIGHT DECREASED [None]
